FAERS Safety Report 6780711-3 (Version None)
Quarter: 2010Q2

REPORT INFORMATION
  Report Type: 
  Country: None (occurrence: None)
  Receive Date: 20100621
  Receipt Date: 20100609
  Transmission Date: 20101027
  Serious: No
  Sender: FDA-Public Use
  Company Number: 2009BI006312

PATIENT
  Sex: Male

DRUGS (1)
  1. TYSABRI [Suspect]
     Indication: MULTIPLE SCLEROSIS
     Route: 042
     Dates: start: 20061012, end: 20080922

REACTIONS (8)
  - BALANCE DISORDER [None]
  - COGNITIVE DISORDER [None]
  - DRUG INEFFECTIVE [None]
  - FALL [None]
  - GENERAL SYMPTOM [None]
  - MEMORY IMPAIRMENT [None]
  - TREMOR [None]
  - VISION BLURRED [None]
